FAERS Safety Report 7921112-1 (Version None)
Quarter: 2011Q4

REPORT INFORMATION
  Report Type: 
  Country: None (occurrence: None)
  Receive Date: 20111117
  Receipt Date: 20111108
  Transmission Date: 20120403
  Serious: Yes (Hospitalization)
  Sender: FDA-Public Use
  Company Number: PL-ELI_LILLY_AND_COMPANY-PL201109001584

PATIENT
  Sex: Male
  Weight: 54 kg

DRUGS (2)
  1. GEMCITABINE HYDROCHLORIDE [Suspect]
     Indication: NON-SMALL CELL LUNG CANCER STAGE IV
     Dosage: 2025 MG, EVERY 21 DAYS/CYCLE
     Route: 042
     Dates: start: 20110510, end: 20110830
  2. CISPLATIN [Suspect]
     Indication: NON-SMALL CELL LUNG CANCER STAGE IV
     Dosage: 121 MG, EVERY 21 DAYS/CYCLE
     Route: 042
     Dates: start: 20110510, end: 20110830

REACTIONS (1)
  - RENAL FAILURE [None]
